FAERS Safety Report 15679625 (Version 1)
Quarter: 2018Q4

REPORT INFORMATION
  Report Type: Spontaneous
  Country: ES (occurrence: ES)
  Receive Date: 20181203
  Receipt Date: 20181203
  Transmission Date: 20190205
  Serious: Yes (Hospitalization)
  Sender: FDA-Public Use
  Company Number: ES-ACCORD-094790

PATIENT
  Age: 73 Year
  Sex: Female
  Weight: 77.7 kg

DRUGS (3)
  1. SIMVASTATIN. [Suspect]
     Active Substance: SIMVASTATIN
     Indication: HYPERCHOLESTEROLAEMIA
     Dosage: 10 MG ONCE A DAY, ALSO TAKEN FROM 14-JUN-2017 TO 18-OCT-2017
     Route: 048
     Dates: start: 20130101, end: 20170417
  2. LEVOFLOXACIN/LEVOFLOXACIN MESYLATE [Suspect]
     Active Substance: LEVOFLOXACIN
     Indication: BRONCHITIS
     Dosage: 500 MG A DAY FOR 7 DAYS
     Route: 048
     Dates: start: 201710, end: 201710
  3. FOSTER [Suspect]
     Active Substance: BECLOMETHASONE\FORMOTEROL
     Indication: BRONCHITIS
     Dosage: 100/6 MICROGRAMS 2 TIMES A DAY
     Route: 055
     Dates: start: 20170710, end: 20171018

REACTIONS (1)
  - Neutropenia [Recovered/Resolved]

NARRATIVE: CASE EVENT DATE: 20171016
